FAERS Safety Report 4797870-4 (Version None)
Quarter: 2005Q3

REPORT INFORMATION
  Report Type: 
  Country: None (occurrence: None)
  Receive Date: 20050929
  Receipt Date: 20040811
  Transmission Date: 20060218
  Serious: No
  Sender: FDA-Public Use
  Company Number: 05P-163-0299806-00

PATIENT
  Age: 80 Year
  Sex: Female
  Weight: 54.4316 kg

DRUGS (8)
  1. HUMIRA [Suspect]
     Indication: RHEUMATOID ARTHRITIS
     Dosage: 40 MG, 1 IN 2 WK, SUBCUTANEOUS
     Route: 058
     Dates: start: 20050225
  2. TOLMETIN SODIUM [Concomitant]
  3. VITAMINS [Concomitant]
  4. BLOOD PRESSURE MEDICATION [Concomitant]
  5. SERETIDE MITE [Concomitant]
  6. METHOTREXATE [Concomitant]
  7. IPRATROPIUM BROMIDE [Concomitant]
  8. MULTI-VITAMINS [Concomitant]

REACTIONS (12)
  - ARTHRALGIA [None]
  - BLOOD PRESSURE INCREASED [None]
  - COUGH [None]
  - DRUG INEFFECTIVE [None]
  - FATIGUE [None]
  - HEPATIC ENZYME INCREASED [None]
  - INJECTION SITE ERYTHEMA [None]
  - INJECTION SITE HAEMORRHAGE [None]
  - INJECTION SITE PRURITUS [None]
  - MUSCULOSKELETAL STIFFNESS [None]
  - MYALGIA [None]
  - WEIGHT DECREASED [None]
